FAERS Safety Report 9333292 (Version 3)
Quarter: 2013Q4

REPORT INFORMATION
  Report Type: Spontaneous
  Country: JP (occurrence: JP)
  Receive Date: 20130606
  Receipt Date: 20131209
  Transmission Date: 20140711
  Serious: Yes (Other)
  Sender: FDA-Public Use
  Company Number: PHHY2013JP056117

PATIENT
  Age: 46 Year
  Sex: Female

DRUGS (3)
  1. TASIGNA [Suspect]
     Indication: CHRONIC MYELOID LEUKAEMIA
     Dosage: 400 MG, DAILY
     Route: 048
     Dates: start: 20090808, end: 20130520
  2. LASIX [Concomitant]
     Dosage: 20 MG, UNK
     Route: 048
     Dates: start: 20080701, end: 20090814
  3. ALDACTONE A [Concomitant]
     Dosage: 50 MG, UNK
     Route: 048
     Dates: start: 20080524, end: 20090814

REACTIONS (4)
  - Ophthalmoplegia [Unknown]
  - Diplopia [Recovering/Resolving]
  - Headache [Unknown]
  - Peripheral vascular disorder [Unknown]
